FAERS Safety Report 12488301 (Version 1)
Quarter: 2016Q2

REPORT INFORMATION
  Report Type: Report from Study
  Country: US (occurrence: US)
  Receive Date: 20160622
  Receipt Date: 20160622
  Transmission Date: 20160815
  Serious: Yes (Other)
  Sender: FDA-Public Use
  Company Number: US-AMGEN-USASL2016077939

PATIENT
  Age: 59 Year
  Sex: Male

DRUGS (2)
  1. THRIVE                             /01033302/ [Concomitant]
  2. ENBREL [Suspect]
     Active Substance: ETANERCEPT
     Indication: RHEUMATOID ARTHRITIS
     Dosage: 50 MG, QWK
     Route: 065
     Dates: start: 20151016

REACTIONS (12)
  - Fatigue [Unknown]
  - Nasopharyngitis [Unknown]
  - Contusion [Unknown]
  - Back pain [Unknown]
  - Cough [Unknown]
  - Melanocytic naevus [Unknown]
  - Nasal disorder [Unknown]
  - Chest pain [Unknown]
  - Carpal tunnel syndrome [Not Recovered/Not Resolved]
  - Musculoskeletal pain [Not Recovered/Not Resolved]
  - Pain in extremity [Unknown]
  - Paranasal sinus hypersecretion [Unknown]
